FAERS Safety Report 4625372-4 (Version None)
Quarter: 2005Q2

REPORT INFORMATION
  Report Type: 
  Country: None (occurrence: None)
  Receive Date: 20050325
  Receipt Date: 20050114
  Transmission Date: 20051028
  Serious: No
  Sender: FDA-Public Use
  Company Number: US_0411108248

PATIENT
  Age: 74 Year
  Sex: Female

DRUGS (16)
  1. FORTEO [Suspect]
     Indication: OSTEOPOROSIS
     Dates: start: 20041005, end: 20050101
  2. IMITREX (SUAMTRIPTAN SUCCINATE) [Concomitant]
  3. VITAMIN D [Concomitant]
  4. OXYCONTIN [Concomitant]
  5. OXYCODONE HCL [Concomitant]
  6. VERAPAMIL [Concomitant]
  7. DIAZEPAM [Concomitant]
  8. PAROXETINE HCL [Concomitant]
  9. PREVACID [Concomitant]
  10. INFLUENZA VACCINE [Concomitant]
  11. BENADRYL [Concomitant]
  12. CELEBREX [Concomitant]
  13. CALCIUM GLUCONATE [Concomitant]
  14. VITAMINS NOS [Concomitant]
  15. PAXIL [Concomitant]
  16. DIPHENHYDRAMINE HCL [Concomitant]

REACTIONS (11)
  - DEPRESSION [None]
  - DIARRHOEA [None]
  - DIZZINESS [None]
  - FEELING ABNORMAL [None]
  - MEDICATION ERROR [None]
  - MYALGIA [None]
  - NAUSEA [None]
  - OVERDOSE [None]
  - SOMNOLENCE [None]
  - VISUAL ACUITY REDUCED [None]
  - VOMITING [None]
